FAERS Safety Report 9806500 (Version 1)
Quarter: 2014Q1

REPORT INFORMATION
  Report Type: Report from Study
  Country: LB (occurrence: LB)
  Receive Date: 20140109
  Receipt Date: 20140109
  Transmission Date: 20141002
  Serious: Yes (Life-Threatening, Hospitalization)
  Sender: FDA-Public Use
  Company Number: LB-SA-2014SA002102

PATIENT
  Age: 64 Year
  Sex: Male

DRUGS (6)
  1. LANTUS SOLOSTAR [Suspect]
     Indication: DIABETES MELLITUS
     Dosage: DOSE:20 UNIT(S)
     Route: 058
     Dates: start: 201311
  2. TRADJENTA [Concomitant]
     Route: 048
  3. GLURENOR [Concomitant]
     Route: 048
  4. INEGY [Concomitant]
  5. EXFORGE [Concomitant]
     Route: 048
  6. SOLOSTAR [Concomitant]
     Dates: start: 201311

REACTIONS (3)
  - Cerebral haemorrhage [Not Recovered/Not Resolved]
  - Fall [Unknown]
  - Vertigo [Unknown]
